FAERS Safety Report 9523588 (Version 1)
Quarter: 2013Q3

REPORT INFORMATION
  Report Type: Report from Study
  Country: US (occurrence: US)
  Receive Date: 20130913
  Receipt Date: 20130913
  Transmission Date: 20140515
  Serious: Yes (Hospitalization)
  Sender: FDA-Public Use
  Company Number: US-ROCHE-1272610

PATIENT
  Sex: Female

DRUGS (5)
  1. TYLENOL [Concomitant]
     Dosage: AS NEEDED
     Route: 065
  2. XELODA [Suspect]
     Indication: BREAST CANCER METASTATIC
     Route: 065
     Dates: start: 20130705, end: 201307
  3. LEVOTHYROXINE [Concomitant]
  4. ASPIRIN [Concomitant]
  5. CLARITIN [Concomitant]
     Indication: HYPERSENSITIVITY

REACTIONS (3)
  - Fall [Unknown]
  - Asthenia [Recovered/Resolved]
  - Concomitant disease aggravated [Unknown]
